FAERS Safety Report 4907949-1 (Version None)
Quarter: 2006Q1

REPORT INFORMATION
  Report Type: 
  Country: None (occurrence: None)
  Receive Date: 20060210
  Receipt Date: 20060201
  Transmission Date: 20060701
  Serious: Yes (Hospitalization)
  Sender: FDA-Public Use
  Company Number: JP-JNJFOC-20051103787

PATIENT
  Age: 73 Year
  Sex: Female
  Weight: 49 kg

DRUGS (23)
  1. REMICADE [Suspect]
     Route: 042
  2. REMICADE [Suspect]
     Indication: RHEUMATOID ARTHRITIS
     Route: 042
  3. RHEUMATREX [Suspect]
     Indication: RHEUMATOID ARTHRITIS
     Route: 048
  4. ISCOTIN [Suspect]
     Indication: DRUG USE FOR UNKNOWN INDICATION
     Route: 048
  5. MOVER [Concomitant]
     Route: 048
  6. MOVER [Concomitant]
     Indication: RHEUMATOID ARTHRITIS
     Route: 048
  7. CYTOTEC [Concomitant]
     Dosage: DOSE 200 RG
     Route: 048
  8. CYTOTEC [Concomitant]
     Indication: RHEUMATOID ARTHRITIS
     Dosage: DOSE 600 RG
     Route: 048
  9. GLAKAY [Concomitant]
     Route: 048
  10. GLAKAY [Concomitant]
     Indication: RHEUMATOID ARTHRITIS
     Route: 048
  11. URALYT [Concomitant]
     Route: 048
  12. URALYT [Concomitant]
     Route: 048
  13. URALYT [Concomitant]
     Route: 048
  14. URALYT [Concomitant]
     Route: 048
  15. URALYT [Concomitant]
     Route: 048
  16. URALYT [Concomitant]
     Route: 048
  17. URALYT [Concomitant]
     Route: 048
  18. PREDNISOLONE [Concomitant]
     Indication: RHEUMATOID ARTHRITIS
     Route: 048
  19. LOXONIN [Concomitant]
     Route: 048
  20. LOXONIN [Concomitant]
     Indication: RHEUMATOID ARTHRITIS
     Route: 048
  21. TOCOPHEROL CONCENTRATE CAP [Concomitant]
     Route: 048
  22. TOCOPHEROL CONCENTRATE CAP [Concomitant]
     Indication: RHEUMATOID ARTHRITIS
     Route: 048
  23. ALFAROL [Concomitant]
     Indication: RHEUMATOID ARTHRITIS
     Dosage: DOSE: .25RG
     Route: 048

REACTIONS (5)
  - BONE MARROW FAILURE [None]
  - ESCHERICHIA INFECTION [None]
  - PLATELET COUNT DECREASED [None]
  - PYELONEPHRITIS [None]
  - SEPSIS [None]
